FAERS Safety Report 4560408-0 (Version None)
Quarter: 2005Q1

REPORT INFORMATION
  Report Type: 
  Country: None (occurrence: None)
  Receive Date: 20050125
  Receipt Date: 20011109
  Transmission Date: 20050727
  Serious: Yes (Life-Threatening, Hospitalization, Other)
  Sender: FDA-Public Use
  Company Number: US-AMGEN-US008191

PATIENT
  Age: 43 Year
  Sex: Male

DRUGS (1)
  1. NEUPOGEN [Suspect]
     Indication: BLOOD STEM CELL HARVEST

REACTIONS (9)
  - ABDOMINAL PAIN LOWER [None]
  - HAEMOGLOBIN DECREASED [None]
  - HEPATIC HAEMORRHAGE [None]
  - HYPOTENSION [None]
  - PLATELET COUNT DECREASED [None]
  - PROCEDURAL COMPLICATION [None]
  - SPLENIC HAEMORRHAGE [None]
  - SPLENIC RUPTURE [None]
  - WHITE BLOOD CELL COUNT INCREASED [None]
